FAERS Safety Report 8084992-8 (Version None)
Quarter: 2012Q1

REPORT INFORMATION
  Report Type: 
  Country: None (occurrence: None)
  Receive Date: 20120128
  Receipt Date: 20110321
  Transmission Date: 20120608
  Serious: No
  Sender: FDA-Public Use
  Company Number: US-ABBOTT-11P-163-0713173-00

PATIENT
  Age: 45 Year
  Sex: Female
  Weight: 118.04 kg

DRUGS (1)
  1. HUMIRA [Suspect]
     Indication: PSORIATIC ARTHROPATHY
     Dosage: DOSE UNKNOWN
     Dates: start: 20100101, end: 20100301

REACTIONS (7)
  - INJECTION SITE REACTION [None]
  - INFLUENZA LIKE ILLNESS [None]
  - NAUSEA [None]
  - INJECTION SITE PAIN [None]
  - RED BLOOD CELL SEDIMENTATION RATE INCREASED [None]
  - PAIN [None]
  - HEADACHE [None]
